FAERS Safety Report 12979527 (Version 1)
Quarter: 2016Q4

REPORT INFORMATION
  Report Type: Spontaneous
  Country: BR (occurrence: BR)
  Receive Date: 20161128
  Receipt Date: 20161128
  Transmission Date: 20170207
  Serious: Yes (Death, Hospitalization, Congenital Anomaly)
  Sender: FDA-Public Use
  Company Number: BR-IPCA LABORATORIES LIMITED-IPC201611-000982

PATIENT
  Sex: Male

DRUGS (1)
  1. LOSARTAN. [Suspect]
     Active Substance: LOSARTAN
     Route: 064

REACTIONS (5)
  - Oligohydramnios [Unknown]
  - Foetal growth abnormality [Unknown]
  - Cardiac arrest neonatal [Fatal]
  - Malformation venous [Unknown]
  - Foetal exposure during pregnancy [Unknown]
